FAERS Safety Report 26130377 (Version 1)
Quarter: 2025Q4

REPORT INFORMATION
  Report Type: Other
  Country: EU (occurrence: EU)
  Receive Date: 20251208
  Receipt Date: 20251208
  Transmission Date: 20260117
  Serious: Yes (Other)
  Sender: Atnahs Healthcare
  Company Number: None

PATIENT

DRUGS (5)
  1. DIAZEPAM [Suspect]
     Active Substance: DIAZEPAM
     Indication: Schizophrenia
     Dosage: 30 MG/J
     Route: 048
     Dates: start: 20241125, end: 20250904
  2. LOXAPINE [Suspect]
     Active Substance: LOXAPINE
     Indication: Schizophrenia
     Dosage: 300 MG/J
     Route: 048
     Dates: start: 20240919, end: 20250904
  3. TROPATEPINE [Suspect]
     Active Substance: TROPATEPINE
     Indication: Schizophrenia
     Dosage: 20 MG/J
     Route: 048
     Dates: start: 20240901, end: 20250904
  4. TRIMEPRAZINE [Suspect]
     Active Substance: TRIMEPRAZINE
     Indication: Schizophrenia
     Dosage: 15 MG/J
     Route: 048
     Dates: start: 20240916, end: 20250904
  5. HALOPERIDOL [Suspect]
     Active Substance: HALOPERIDOL
     Indication: Schizophrenia
     Dosage: 15- 20 MG/J
     Route: 048
     Dates: start: 20240916

REACTIONS (3)
  - Urinary retention [Not Recovered/Not Resolved]
  - Condition aggravated [Not Recovered/Not Resolved]
  - Acute kidney injury [Recovered/Resolved]

NARRATIVE: CASE EVENT DATE: 20250915
